FAERS Safety Report 7323007-3 (Version None)
Quarter: 2011Q1

REPORT INFORMATION
  Report Type: 
  Country: None (occurrence: None)
  Receive Date: 20110301
  Receipt Date: 20110223
  Transmission Date: 20110831
  Serious: Yes (Death, Other)
  Sender: FDA-Public Use
  Company Number: PHHY2011AU14693

PATIENT

DRUGS (3)
  1. CLOZAPINE [Suspect]
     Indication: SCHIZOPHRENIA
     Dosage: 300 MG, QD
  2. BENZTROPINE MESYLATE [Concomitant]
  3. LACTULOSE [Concomitant]

REACTIONS (2)
  - MYOCARDITIS [None]
  - ASTHMA [None]
